FAERS Safety Report 14486782 (Version 2)
Quarter: 2018Q1

REPORT INFORMATION
  Report Type: Spontaneous
  Country: US (occurrence: US)
  Receive Date: 20180205
  Receipt Date: 20180321
  Transmission Date: 20180509
  Serious: Yes (Hospitalization, Other)
  Sender: FDA-Public Use
  Company Number: US-JNJFOC-20180100595

PATIENT
  Age: 48 Year
  Sex: Female

DRUGS (1)
  1. INVOKANA [Suspect]
     Active Substance: CANAGLIFLOZIN
     Indication: DIABETES MELLITUS
     Route: 048

REACTIONS (8)
  - Osteomyelitis [Unknown]
  - Diabetic ulcer [Unknown]
  - Metatarsal excision [Recovering/Resolving]
  - Postoperative wound infection [Unknown]
  - Toe amputation [Recovering/Resolving]
  - Cellulitis [Unknown]
  - Diabetic foot [Unknown]
  - Foot amputation [Unknown]

NARRATIVE: CASE EVENT DATE: 20160627
